FAERS Safety Report 5490232-6 (Version None)
Quarter: 2007Q4

REPORT INFORMATION
  Report Type: 
  Country: None (occurrence: None)
  Receive Date: 20071018
  Receipt Date: 20071010
  Transmission Date: 20080405
  Serious: Yes (Other)
  Sender: FDA-Public Use
  Company Number: AU-ABBOTT-07P-008-0420272-00

PATIENT

DRUGS (3)
  1. VALPROATE SODIUM [Suspect]
     Indication: DRUG USE FOR UNKNOWN INDICATION
  2. PIOGLITAZONE HCL [Interacting]
     Indication: DRUG USE FOR UNKNOWN INDICATION
  3. LAMOTRIGINE [Interacting]
     Indication: DRUG USE FOR UNKNOWN INDICATION

REACTIONS (4)
  - DRUG INTERACTION [None]
  - GRAND MAL CONVULSION [None]
  - HYPOGLYCAEMIA [None]
  - MYOCLONUS [None]
